FAERS Safety Report 7628533-5 (Version None)
Quarter: 2011Q4

REPORT INFORMATION
  Report Type: 
  Country: None (occurrence: None)
  Receive Date: 20110705
  Receipt Date: 20100608
  Transmission Date: 20120403
  Serious: Yes (Other)
  Sender: FDA-Public Use
  Company Number: QR40122-01

PATIENT
  Age: 66 Year
  Sex: Male
  Weight: 71.5 kg

DRUGS (2)
  1. CARBAMAZEPINE [Suspect]
  2. GAMMAPLEX [Suspect]
     Indication: CHRONIC INFLAMMATORY DEMYELINATING POLYRADICULONEUROPATHY
     Dosage: 50 G
     Dates: start: 20100427

REACTIONS (3)
  - HEADACHE [None]
  - DIZZINESS [None]
  - PARAESTHESIA [None]
